FAERS Safety Report 15819002 (Version 2)
Quarter: 2019Q1

REPORT INFORMATION
  Report Type: Spontaneous
  Country: IT (occurrence: IT)
  Receive Date: 20190114
  Receipt Date: 20190131
  Transmission Date: 20190417
  Serious: Yes (Disabling)
  Sender: FDA-Public Use
  Company Number: IT-TEVA-2019-IT-998037

PATIENT
  Age: 29 Year
  Sex: Male
  Weight: 74 kg

DRUGS (1)
  1. FINASTERIDE. [Suspect]
     Active Substance: FINASTERIDE
     Indication: ALOPECIA
     Dosage: 1 MILLIGRAM DAILY;
     Route: 048
     Dates: start: 20071010, end: 20150111

REACTIONS (4)
  - Erectile dysfunction [Not Recovered/Not Resolved]
  - Abdominal discomfort [Not Recovered/Not Resolved]
  - Lymphopenia [Not Recovered/Not Resolved]
  - Asthenia [Not Recovered/Not Resolved]

NARRATIVE: CASE EVENT DATE: 20150212
